FAERS Safety Report 25408021 (Version 1)
Quarter: 2025Q2

REPORT INFORMATION
  Report Type: Spontaneous
  Country: CZ (occurrence: CZ)
  Receive Date: 20250606
  Receipt Date: 20250606
  Transmission Date: 20250717
  Serious: Yes (Other)
  Sender: NOVARTIS
  Company Number: CZ-002147023-NVSC2025CZ090704

PATIENT
  Sex: Male

DRUGS (7)
  1. SECUKINUMAB [Suspect]
     Active Substance: SECUKINUMAB
     Indication: Hidradenitis
     Dosage: 300 MG, Q4W (DOSING STANDARD (LOADING + 300 MG EVERY 4 WEEKS))
     Route: 065
     Dates: start: 202109
  2. AUGMENTIN [Concomitant]
     Active Substance: AMOXICILLIN\CLAVULANATE POTASSIUM
     Indication: Staphylococcal infection
     Route: 065
  3. AUGMENTIN [Concomitant]
     Active Substance: AMOXICILLIN\CLAVULANATE POTASSIUM
     Indication: Beta haemolytic streptococcal infection
  4. Duracef [Concomitant]
     Indication: Staphylococcal infection
     Dosage: 500 MG, BID (LONG TERM)
     Route: 065
  5. Duracef [Concomitant]
     Indication: Beta haemolytic streptococcal infection
  6. METRONIDAZOLE [Concomitant]
     Active Substance: METRONIDAZOLE
     Indication: Staphylococcal infection
     Dosage: 250 UNK, TID (LONG TERM)
     Route: 065
  7. METRONIDAZOLE [Concomitant]
     Active Substance: METRONIDAZOLE
     Indication: Beta haemolytic streptococcal infection

REACTIONS (7)
  - Scrotal abscess [Recovering/Resolving]
  - Hidradenitis [Recovering/Resolving]
  - Impaired quality of life [Recovering/Resolving]
  - Lymphoedema [Recovering/Resolving]
  - Skin maceration [Recovering/Resolving]
  - Inflammation [Recovering/Resolving]
  - Perineal fistula [Recovering/Resolving]

NARRATIVE: CASE EVENT DATE: 20220301
